FAERS Safety Report 20057696 (Version 3)
Quarter: 2021Q4

REPORT INFORMATION
  Report Type: Spontaneous
  Country: RO (occurrence: RO)
  Receive Date: 20211111
  Receipt Date: 20211201
  Transmission Date: 20220303
  Serious: Yes (Death, Other)
  Sender: FDA-Public Use
  Company Number: RO-ASTELLAS-2021US042310

PATIENT
  Age: 75 Year
  Sex: Male

DRUGS (12)
  1. ELIGARD [Suspect]
     Active Substance: LEUPROLIDE ACETATE
     Indication: Prostate cancer
     Dosage: 22.5 MG, 1 VIAL AT EVERY 3 MONTHS
     Route: 065
     Dates: start: 20180611
  2. XTANDI [Suspect]
     Active Substance: ENZALUTAMIDE
     Indication: Prostate cancer
     Route: 065
     Dates: start: 20190906
  3. MORPHINE [Concomitant]
     Active Substance: MORPHINE
     Indication: Pain
     Dosage: 2 DF (TABLET), ONCE DAILY (AS NEEDED)
     Route: 065
     Dates: start: 20190807
  4. MORPHINE [Concomitant]
     Active Substance: MORPHINE
     Indication: Pain
     Dosage: 1 DF (TABLET), ONCE DAILY (AS NEEDED)
     Route: 065
     Dates: start: 20190807
  5. BONEFOS [Concomitant]
     Active Substance: CLODRONATE DISODIUM
     Indication: Product used for unknown indication
     Dosage: 2 DF (TABLET), ONCE DAILY
     Route: 048
  6. ZOLADEX [Concomitant]
     Active Substance: GOSERELIN ACETATE
     Indication: Prostate cancer
     Dosage: 10.8 MG 1 FL AT 3 MONTHS
     Route: 065
     Dates: start: 201802
  7. CYPROTERONE ACETATE [Concomitant]
     Active Substance: CYPROTERONE ACETATE
     Indication: Prostate cancer
     Route: 058
     Dates: start: 201802
  8. CYPROTERONE ACETATE [Concomitant]
     Active Substance: CYPROTERONE ACETATE
     Route: 058
  9. TRAMADOL [Concomitant]
     Active Substance: TRAMADOL
     Indication: Pain
     Route: 065
  10. TRAMADOL [Concomitant]
     Active Substance: TRAMADOL
     Route: 065
  11. ABIRATERONE [Concomitant]
     Active Substance: ABIRATERONE
     Indication: Prostate cancer
     Dosage: UNK UNK, UNKNOWN FREQ.
     Route: 065
     Dates: start: 20180926, end: 20190522
  12. PREDNISONE [Concomitant]
     Active Substance: PREDNISONE
     Indication: Product used for unknown indication
     Dosage: UNK UNK, UNKNOWN FREQ.
     Route: 065
     Dates: start: 20180926

REACTIONS (4)
  - Spinal cord compression [Fatal]
  - Prostatic specific antigen increased [Fatal]
  - Prostate cancer [Fatal]
  - Bone pain [Fatal]

NARRATIVE: CASE EVENT DATE: 20190522
